FAERS Safety Report 8228839-5 (Version None)
Quarter: 2012Q1

REPORT INFORMATION
  Report Type: 
  Country: None (occurrence: None)
  Receive Date: 20120322
  Receipt Date: 20120320
  Transmission Date: 20120608
  Serious: Yes (Hospitalization)
  Sender: FDA-Public Use
  Company Number: KR-VIIV HEALTHCARE LIMITED-B0788730A

PATIENT
  Age: 39 Year
  Sex: Male

DRUGS (2)
  1. KALETRA [Concomitant]
  2. ABACAVIR SULFATE/LAMIVUDINE [Suspect]
     Indication: PRODUCT USED FOR UNKNOWN INDICATION
     Dosage: 1TAB PER DAY
     Route: 065
     Dates: start: 20111215, end: 20111227

REACTIONS (12)
  - RENAL FAILURE ACUTE [None]
  - ABDOMINAL PAIN [None]
  - ALANINE AMINOTRANSFERASE INCREASED [None]
  - LYMPHADENOPATHY [None]
  - GALLBLADDER OEDEMA [None]
  - PYREXIA [None]
  - BLOOD BILIRUBIN INCREASED [None]
  - DRUG HYPERSENSITIVITY [None]
  - ASPARTATE AMINOTRANSFERASE INCREASED [None]
  - SPLENOMEGALY [None]
  - MYALGIA [None]
  - DIARRHOEA [None]
